FAERS Safety Report 7311836-1 (Version None)
Quarter: 2011Q1

REPORT INFORMATION
  Report Type: 
  Country: None (occurrence: None)
  Receive Date: 20110224
  Receipt Date: 20110215
  Transmission Date: 20110831
  Serious: No
  Sender: FDA-Public Use
  Company Number: US-BAYER-2011-015439

PATIENT
  Age: 30 Year
  Sex: Female

DRUGS (1)
  1. MIRENA [Suspect]
     Indication: CONTRACEPTION
     Dosage: DAILY DOSE 20 ?G/D
     Route: 015
     Dates: start: 20080601

REACTIONS (4)
  - VAGINAL DISCHARGE [None]
  - MENORRHAGIA [None]
  - AMENORRHOEA [None]
  - FUNGAL INFECTION [None]
